FAERS Safety Report 4471632-X (Version None)
Quarter: 2004Q4

REPORT INFORMATION
  Report Type: 
  Country: None (occurrence: None)
  Receive Date: 20041012
  Receipt Date: 20000515
  Transmission Date: 20050328
  Serious: Yes (Other)
  Sender: FDA-Public Use
  Company Number: US-MERCK-00080818

PATIENT
  Age: 75 Year
  Sex: Male
  Weight: 69 kg

DRUGS (12)
  1. CELEBREX [Suspect]
     Indication: BACK PAIN
     Route: 048
     Dates: start: 19990901, end: 20000101
  2. CELEBREX [Suspect]
     Indication: MONARTHRITIS
     Route: 048
     Dates: start: 19990901, end: 20000101
  3. CHONDROITIN [Concomitant]
     Route: 065
  4. GLUCOSAMINE [Concomitant]
     Route: 065
  5. ISOSORBIDE DINITRATE [Concomitant]
     Route: 065
     Dates: start: 19950101
  6. NITROGLYCERIN [Concomitant]
     Route: 065
  7. PRAVASTATIN SODIUM [Concomitant]
     Route: 065
     Dates: start: 19980101
  8. ASPIRIN [Concomitant]
     Route: 065
  9. ATENOLOL [Concomitant]
     Route: 065
     Dates: start: 19950101
  10. VIOXX [Suspect]
     Indication: BACK PAIN
     Route: 048
     Dates: start: 19990101
  11. VIOXX [Suspect]
     Indication: ARTHROPATHY
     Route: 048
     Dates: start: 19990101
  12. VITAMINS (UNSPECIFIED) [Concomitant]
     Route: 065

REACTIONS (1)
  - CATARACT [None]
